FAERS Safety Report 10689540 (Version 7)
Quarter: 2015Q3

REPORT INFORMATION
  Report Type: Spontaneous
  Country: US (occurrence: US)
  Receive Date: 20150105
  Receipt Date: 20150825
  Transmission Date: 20151125
  Serious: Yes (Hospitalization)
  Sender: FDA-Public Use
  Company Number: US-PFIZER INC-2014359233

PATIENT
  Age: 68 Year
  Sex: Male
  Weight: 65 kg

DRUGS (8)
  1. FOLIC ACID. [Concomitant]
     Active Substance: FOLIC ACID
     Dosage: UNK
  2. SUTENT [Suspect]
     Active Substance: SUNITINIB MALATE
     Indication: METASTATIC RENAL CELL CARCINOMA
     Dosage: 50 MG, EVERY OTHER DAY, 28 DAYS ON AND 14 DAYS OFF INITIALLY
     Dates: start: 20131226
  3. SUTENT [Suspect]
     Active Substance: SUNITINIB MALATE
     Dosage: 50 MG, ALTERNATE DAY (EVERY OTHER DAY)
     Dates: start: 20131226, end: 20150420
  4. SUTENT [Suspect]
     Active Substance: SUNITINIB MALATE
     Dosage: 50 MG, ALTERNATE DAY CONTINUOUSLY
     Dates: start: 20150322, end: 20150427
  5. FLOMAX [Concomitant]
     Active Substance: TAMSULOSIN HYDROCHLORIDE
     Dosage: UNK
     Dates: start: 2013
  6. SUTENT [Suspect]
     Active Substance: SUNITINIB MALATE
     Dosage: 50 MG, (EVERY OTHER DAY CONTINUOUSLY WITH 7-10 DAY BREAKS  WHEN HE NEEDED )
     Dates: start: 201412, end: 20150310
  7. CRESTOR [Concomitant]
     Active Substance: ROSUVASTATIN CALCIUM
     Dosage: UNK
     Dates: end: 20150211
  8. BABY ASPIRIN [Concomitant]
     Active Substance: ASPIRIN
     Dosage: 81 MG, UNK

REACTIONS (15)
  - Dyspepsia [Not Recovered/Not Resolved]
  - Diarrhoea [Not Recovered/Not Resolved]
  - Sinus disorder [Recovered/Resolved]
  - Decreased appetite [Unknown]
  - Groin pain [Unknown]
  - Blood pressure increased [Not Recovered/Not Resolved]
  - Oral pain [Unknown]
  - Epistaxis [Not Recovered/Not Resolved]
  - Mouth haemorrhage [Recovered/Resolved]
  - Jaw disorder [Unknown]
  - Palmar-plantar erythrodysaesthesia syndrome [Unknown]
  - Dysgeusia [Unknown]
  - Swelling [Unknown]
  - Gingival bleeding [Recovered/Resolved]
  - Gingival disorder [Unknown]
